FAERS Safety Report 12657208 (Version 1)
Quarter: 2016Q3

REPORT INFORMATION
  Report Type: Spontaneous
  Country: US (occurrence: US)
  Receive Date: 20160816
  Receipt Date: 20160816
  Transmission Date: 20161109
  Serious: Yes (Other)
  Sender: FDA-Public Use
  Company Number: US-LOREAL USA PRODUCTS, INC.-2016LOR00011

PATIENT
  Sex: Female

DRUGS (1)
  1. DERMABLEND COVER [Suspect]
     Active Substance: TITANIUM DIOXIDE
     Dosage: UNK UNK, 1X/DAY
     Dates: start: 201601, end: 20160201

REACTIONS (15)
  - Hypersensitivity [None]
  - Dermatitis contact [None]
  - Application site erythema [None]
  - Skin ulcer [None]
  - Eye swelling [None]
  - Feeling hot [None]
  - Acne [None]
  - Chemical injury [None]
  - Klebsiella infection [None]
  - Dyspnoea [None]
  - Application site pain [None]
  - Dizziness [None]
  - Throat tightness [None]
  - Swelling face [None]
  - Blister [None]

NARRATIVE: CASE EVENT DATE: 201601
